FAERS Safety Report 7075656-8 (Version None)
Quarter: 2010Q4

REPORT INFORMATION
  Report Type: 
  Country: None (occurrence: None)
  Receive Date: 20101030
  Receipt Date: 20101011
  Transmission Date: 20110411
  Serious: No
  Sender: FDA-Public Use
  Company Number: US-WYE-H18131010

PATIENT
  Sex: Female
  Weight: 52.21 kg

DRUGS (3)
  1. PRISTIQ [Suspect]
     Indication: DEPRESSION
     Route: 048
     Dates: start: 20100601, end: 20100901
  2. PRISTIQ [Suspect]
     Route: 048
     Dates: start: 20100901
  3. CYMBALTA [Concomitant]

REACTIONS (1)
  - DYSPEPSIA [None]
